FAERS Safety Report 12471141 (Version 3)
Quarter: 2016Q3

REPORT INFORMATION
  Report Type: Spontaneous
  Country: US (occurrence: US)
  Receive Date: 20160616
  Receipt Date: 20160906
  Transmission Date: 20161109
  Serious: Yes (Death)
  Sender: FDA-Public Use
  Company Number: US-SA-2016SA112499

PATIENT
  Sex: Male

DRUGS (1)
  1. GOLD BOND ORIGINAL STRENGTH LOTION [Suspect]
     Active Substance: DIMETHICONE\MENTHOL
     Route: 065

REACTIONS (1)
  - Oesophageal carcinoma [Fatal]
